FAERS Safety Report 12427761 (Version 1)
Quarter: 2016Q2

REPORT INFORMATION
  Report Type: Report from Study
  Country: TW (occurrence: TW)
  Receive Date: 20160602
  Receipt Date: 20160602
  Transmission Date: 20160815
  Serious: Yes (Other)
  Sender: FDA-Public Use
  Company Number: TW-SUN PHARMACEUTICAL INDUSTRIES LTD-2016R1-117409

PATIENT
  Sex: Male

DRUGS (1)
  1. DOXORUBICIN [Suspect]
     Active Substance: DOXORUBICIN
     Indication: HEPATOCELLULAR CARCINOMA
     Dosage: UNK
     Route: 013

REACTIONS (1)
  - Cerebral artery embolism [Unknown]
